FAERS Safety Report 14617022 (Version 1)
Quarter: 2018Q1

REPORT INFORMATION
  Report Type: Spontaneous
  Country: RU (occurrence: RU)
  Receive Date: 20180309
  Receipt Date: 20180309
  Transmission Date: 20180509
  Serious: Yes (Hospitalization)
  Sender: FDA-Public Use
  Company Number: RU-ACTELION-A-CH2018-168563

PATIENT
  Age: 11 Year
  Sex: Female

DRUGS (4)
  1. CYTOFLAVIN [Concomitant]
     Dosage: 10 ML, UNK
  2. KEPPRA [Concomitant]
     Active Substance: LEVETIRACETAM
     Indication: EPILEPSY
     Dosage: 62.5 UNK, BID
  3. CARBAMAZEPIN [Concomitant]
     Active Substance: CARBAMAZEPINE
     Indication: EPILEPSY
     Dosage: 200 UNK, TID
  4. ZAVESCA [Suspect]
     Active Substance: MIGLUSTAT
     Indication: NIEMANN-PICK DISEASE
     Dosage: 200 UNK, BID
     Route: 048
     Dates: start: 20160901

REACTIONS (3)
  - Body temperature increased [Unknown]
  - Hyperthermia [Unknown]
  - Respiratory tract infection viral [Unknown]

NARRATIVE: CASE EVENT DATE: 201711
